FAERS Safety Report 7206387-9 (Version None)
Quarter: 2011Q1

REPORT INFORMATION
  Report Type: 
  Country: None (occurrence: None)
  Receive Date: 20110103
  Receipt Date: 20110103
  Transmission Date: 20110831
  Serious: Yes (Hospitalization)
  Sender: FDA-Public Use
  Company Number: PHHO2007DE14176

PATIENT
  Sex: Female
  Weight: 72 kg

DRUGS (7)
  1. CERTICAN [Suspect]
     Indication: CONGENITAL CYSTIC KIDNEY DISEASE
     Dosage: UNK
     Route: 048
     Dates: start: 20070726, end: 20070825
  2. RAMIPRIL [Concomitant]
     Dosage: UNK, UNK
     Dates: start: 20070827
  3. SIMVASTATIN [Concomitant]
  4. ALLOPURINOL [Concomitant]
  5. RAMIPRIL [Suspect]
     Dates: start: 20060531, end: 20070826
  6. LEVOTHYROXINE SODIUM [Concomitant]
  7. NEXIUM [Concomitant]

REACTIONS (2)
  - SWELLING FACE [None]
  - ANGIOEDEMA [None]
